FAERS Safety Report 5836104-6 (Version None)
Quarter: 2008Q3

REPORT INFORMATION
  Report Type: 
  Country: None (occurrence: None)
  Receive Date: 20080806
  Receipt Date: 20080731
  Transmission Date: 20090109
  Serious: Yes (Other)
  Sender: FDA-Public Use
  Company Number: JP-PFIZER INC-2008064544

PATIENT
  Age: 95 Year
  Sex: Male

DRUGS (1)
  1. NORVASC [Suspect]
     Dosage: DAILY DOSE:2.5MG
     Route: 048

REACTIONS (1)
  - DELIRIUM [None]
